FAERS Safety Report 8505829-6 (Version None)
Quarter: 2012Q3

REPORT INFORMATION
  Report Type: 
  Country: None (occurrence: None)
  Receive Date: 20120702
  Receipt Date: 20120619
  Transmission Date: 20120928
  Serious: Yes (Life-Threatening, Hospitalization)
  Sender: FDA-Public Use
  Company Number: WAES 1003USA00477

PATIENT
  Age: 17 Year
  Sex: Female
  Weight: 74.3899 kg

DRUGS (6)
  1. ISENTRESS [Suspect]
     Indication: HIV INFECTION
     Dosage: 400 MG/BID/PO
     Route: 048
     Dates: start: 20080208, end: 20090114
  2. CEFTAZIDIME [Suspect]
     Indication: PNEUMONIA
     Dosage: /Q8H/IV
     Route: 042
     Dates: end: 20100512
  3. PENTAMIDINE ISETHIONATE [Concomitant]
  4. ENALAPRIL MALEATE [Suspect]
     Indication: CARDIOMYOPATHY
     Dosage: /BID/PO
     Route: 048
     Dates: end: 20100512
  5. VALTREX [Suspect]
     Indication: PROPHYLAXIS
     Dosage: /BID/PO
     Route: 048
     Dates: end: 20100512
  6. VANCOMYCIN [Suspect]
     Indication: PYREXIA
     Dosage: /Q8H/IV
     Route: 042
     Dates: end: 20100512

REACTIONS (63)
  - NYSTAGMUS [None]
  - RHINOVIRUS INFECTION [None]
  - HYPOKALAEMIA [None]
  - BLOOD GLUCOSE INCREASED [None]
  - DEAFNESS UNILATERAL [None]
  - CARDIOMYOPATHY [None]
  - SEPSIS [None]
  - PAIN IN EXTREMITY [None]
  - FUNGAL INFECTION [None]
  - SUICIDAL IDEATION [None]
  - OTITIS MEDIA CHRONIC [None]
  - THROMBOCYTOPENIA [None]
  - HYPONATRAEMIA [None]
  - TACHYPNOEA [None]
  - DEHYDRATION [None]
  - SELF-INJURIOUS IDEATION [None]
  - ELECTROLYTE IMBALANCE [None]
  - TOXICITY TO VARIOUS AGENTS [None]
  - AGITATION [None]
  - AGGRESSION [None]
  - TREATMENT NONCOMPLIANCE [None]
  - FAMILY STRESS [None]
  - RENAL FAILURE ACUTE [None]
  - ATELECTASIS [None]
  - METAPNEUMOVIRUS INFECTION [None]
  - DIARRHOEA [None]
  - ELECTROCARDIOGRAM QT PROLONGED [None]
  - PLEURAL EFFUSION [None]
  - LETHARGY [None]
  - PROGRESSIVE MULTIFOCAL LEUKOENCEPHALOPATHY [None]
  - RASH PRURITIC [None]
  - TYPE 2 DIABETES MELLITUS [None]
  - OPPORTUNISTIC INFECTION [None]
  - SPEECH DISORDER [None]
  - ALANINE AMINOTRANSFERASE INCREASED [None]
  - APPARENT LIFE THREATENING EVENT [None]
  - MYALGIA [None]
  - ARTHRALGIA [None]
  - METABOLIC ACIDOSIS [None]
  - HEPATIC STEATOSIS [None]
  - BLOOD ALBUMIN DECREASED [None]
  - FLUID OVERLOAD [None]
  - COAGULOPATHY [None]
  - PANCREATITIS [None]
  - HAEMOLYTIC ANAEMIA [None]
  - FEELING OF DESPAIR [None]
  - ARTHRITIS REACTIVE [None]
  - RASH ERYTHEMATOUS [None]
  - HERPES ZOSTER [None]
  - EAR INFECTION [None]
  - TACHYCARDIA [None]
  - ANAEMIA [None]
  - MENORRHAGIA [None]
  - DIABETIC KETOACIDOSIS [None]
  - OEDEMA PERIPHERAL [None]
  - FUNGAEMIA [None]
  - MOBILITY DECREASED [None]
  - MUSCULOSKELETAL PAIN [None]
  - TREMOR [None]
  - ENCEPHALOPATHY [None]
  - DEPRESSION [None]
  - ASPARTATE AMINOTRANSFERASE INCREASED [None]
  - PNEUMONIA BORDETELLA [None]
